FAERS Safety Report 5288207-5 (Version None)
Quarter: 2007Q1

REPORT INFORMATION
  Report Type: 
  Country: None (occurrence: None)
  Receive Date: 20070116
  Receipt Date: 20060914
  Transmission Date: 20070707
  Serious: No
  Sender: FDA-Public Use
  Company Number: FEI2006-1295

PATIENT
  Age: 31 Year
  Sex: Female
  Weight: 62.5964 kg

DRUGS (4)
  1. INTRAUTERINE COPPER CONTRACEPTIVE [Suspect]
     Indication: CONTRACEPTION
     Dosage: INTRA-UTERINE
     Route: 015
     Dates: start: 20031101, end: 20060922
  2. ALLEGRA [Concomitant]
  3. FLONASE (FLUTICASONE PROPIONATE)(NASAL DROPS (INCLUDING NASAL SPRAY) [Concomitant]
  4. SINGULAIR [Concomitant]

REACTIONS (4)
  - FALLOPIAN TUBE DISORDER [None]
  - IUCD COMPLICATION [None]
  - SINUSITIS [None]
  - UTERINE PERFORATION [None]
